FAERS Safety Report 13833747 (Version 1)
Quarter: 2017Q3

REPORT INFORMATION
  Report Type: Spontaneous
  Country: US (occurrence: US)
  Receive Date: 20170804
  Receipt Date: 20170804
  Transmission Date: 20171127
  Serious: Yes (Other)
  Sender: FDA-Public Use
  Company Number: US-JNJFOC-20170721757

PATIENT
  Age: 55 Year
  Sex: Female

DRUGS (2)
  1. ACETAMINOPHEN. [Suspect]
     Active Substance: ACETAMINOPHEN
     Indication: PRODUCT USED FOR UNKNOWN INDICATION
     Dosage: MORE THAN 1 MONTH TO LESS THAN OR EQUAL TO 3 MONTHS
     Route: 048
  2. PERCOCET [Suspect]
     Active Substance: ACETAMINOPHEN\OXYCODONE HYDROCHLORIDE
     Indication: HERPES ZOSTER
     Dosage: MORE THAN 1 MONTH TO LESS THAN OR EQUAL TO 3 MONTHS
     Route: 048

REACTIONS (7)
  - Hepatic enzyme increased [Unknown]
  - Computerised tomogram liver abnormal [Unknown]
  - Fatigue [Unknown]
  - Abdominal distension [Unknown]
  - Medication error [Unknown]
  - Somnolence [Unknown]
  - Lethargy [Unknown]
